FAERS Safety Report 4608224-5 (Version None)
Quarter: 2005Q1

REPORT INFORMATION
  Report Type: 
  Country: None (occurrence: None)
  Receive Date: 20050311
  Receipt Date: 20050302
  Transmission Date: 20050727
  Serious: Yes (Other)
  Sender: FDA-Public Use
  Company Number: 200410585BYL

PATIENT
  Age: 52 Year
  Sex: Female
  Weight: 70 kg

DRUGS (3)
  1. ADALAT [Suspect]
     Indication: HYPERTENSION
     Dosage: 20 MG, QD, ORAL; 10 MG, QD, ORAL
     Route: 048
     Dates: start: 20021219, end: 20041025
  2. ADALAT [Suspect]
     Indication: HYPERTENSION
     Dosage: 20 MG, QD, ORAL; 10 MG, QD, ORAL
     Route: 048
     Dates: start: 20041026
  3. GRAPEFRUIT JUICE [Suspect]
     Dosage: ORAL
     Route: 048

REACTIONS (4)
  - DYSPNOEA [None]
  - FACE OEDEMA [None]
  - FOOD INTERACTION [None]
  - LARYNGEAL OEDEMA [None]
